FAERS Safety Report 4422173-7 (Version None)
Quarter: 2004Q3

REPORT INFORMATION
  Report Type: 
  Country: None (occurrence: None)
  Receive Date: 20040810
  Receipt Date: 20040730
  Transmission Date: 20050211
  Serious: Yes (Other)
  Sender: FDA-Public Use
  Company Number: CH-BRISTOL-MYERS SQUIBB COMPANY-12661773

PATIENT
  Age: 35 Year
  Sex: Male

DRUGS (5)
  1. EFAVIRENZ TABS 600 MG [Suspect]
     Indication: HIV INFECTION
     Dosage: ONCE DAILY
     Route: 048
  2. KALETRA [Interacting]
     Indication: HIV INFECTION
     Dosage: 133-33 MG CAPSULES 6 TO 8 TIMES DAILY
     Route: 048
  3. SANDIMMUNE [Interacting]
     Indication: RENAL TRANSPLANT
     Route: 048
     Dates: start: 20040201
  4. PREDNISONE TAB [Interacting]
     Indication: RENAL TRANSPLANT
     Route: 048
     Dates: start: 20040201
  5. CELLCEPT [Interacting]
     Indication: RENAL TRANSPLANT
     Route: 048
     Dates: start: 20040201

REACTIONS (2)
  - DRUG INTERACTION [None]
  - HYPERCHOLESTEROLAEMIA [None]
